FAERS Safety Report 18096255 (Version 3)
Quarter: 2021Q1

REPORT INFORMATION
  Report Type: Spontaneous
  Country: US (occurrence: US)
  Receive Date: 20200731
  Receipt Date: 20210111
  Transmission Date: 20210419
  Serious: Yes (Other)
  Sender: FDA-Public Use
  Company Number: US-GILEAD-2020-0487197

PATIENT
  Age: 50 Year
  Sex: Male

DRUGS (4)
  1. GENVOYA [Concomitant]
     Active Substance: COBICISTAT\ELVITEGRAVIR\EMTRICITABINE\TENOFOVIR ALAFENAMIDE FUMARATE
  2. TRUVADA [Suspect]
     Active Substance: EMTRICITABINE\TENOFOVIR DISOPROXIL FUMARATE
     Indication: HIV INFECTION
     Dosage: UNK
     Route: 048
     Dates: start: 20131208, end: 20160406
  3. BIKTARVY [Concomitant]
     Active Substance: BICTEGRAVIR SODIUM\EMTRICITABINE\TENOFOVIR ALAFENAMIDE FUMARATE
  4. STRIBILD [Suspect]
     Active Substance: COBICISTAT\ELVITEGRAVIR\EMTRICITABINE\TENOFOVIR DISOPROXIL FUMARATE
     Indication: HIV INFECTION
     Dosage: UNK
     Route: 048
     Dates: start: 20160617, end: 20161116

REACTIONS (11)
  - Rotator cuff syndrome [Not Recovered/Not Resolved]
  - Shoulder operation [Not Recovered/Not Resolved]
  - Bone density decreased [Unknown]
  - Spondylolisthesis [Recovered/Resolved]
  - Fracture [Recovered/Resolved]
  - Hip arthroplasty [Recovered/Resolved]
  - Osteonecrosis [Unknown]
  - Osteoporosis [Not Recovered/Not Resolved]
  - Shoulder operation [Not Recovered/Not Resolved]
  - Hip surgery [Unknown]
  - Bone loss [Unknown]

NARRATIVE: CASE EVENT DATE: 2016
